APPROVED DRUG PRODUCT: RANITIDINE HYDROCHLORIDE
Active Ingredient: RANITIDINE HYDROCHLORIDE
Strength: EQ 300MG BASE
Dosage Form/Route: TABLET;ORAL
Application: A075000 | Product #002
Applicant: RANBAXY PHARMACEUTICALS INC
Approved: Jan 30, 1998 | RLD: No | RS: No | Type: DISCN